FAERS Safety Report 9110198 (Version 2)
Quarter: 2013Q3

REPORT INFORMATION
  Report Type: Report from Study
  Country: JP (occurrence: JP)
  Receive Date: 20130222
  Receipt Date: 20130805
  Transmission Date: 20140515
  Serious: Yes (Other)
  Sender: FDA-Public Use
  Company Number: JP-PFIZER INC-2013064422

PATIENT
  Age: 46 Year
  Sex: Female
  Weight: 55 kg

DRUGS (1)
  1. XALKORI [Suspect]
     Indication: NON-SMALL CELL LUNG CANCER
     Dosage: 250 MG, 2X/DAY
     Route: 048
     Dates: start: 20120911, end: 20130215

REACTIONS (1)
  - Hypoaesthesia [Recovering/Resolving]
